FAERS Safety Report 7769605-4 (Version None)
Quarter: 2011Q3

REPORT INFORMATION
  Report Type: 
  Country: None (occurrence: None)
  Receive Date: 20110922
  Receipt Date: 20110517
  Transmission Date: 20111222
  Serious: No
  Sender: FDA-Public Use
  Company Number: US-ASTRAZENECA-2011SE30150

PATIENT
  Age: 91 Year
  Sex: Female

DRUGS (2)
  1. SEROQUEL [Suspect]
     Route: 048
     Dates: start: 20110517
  2. SEROQUEL [Suspect]
     Indication: DEMENTIA WITH LEWY BODIES
     Route: 048
     Dates: end: 20110516

REACTIONS (2)
  - OFF LABEL USE [None]
  - HALLUCINATION, AUDITORY [None]
